FAERS Safety Report 10085622 (Version 2)
Quarter: 2014Q2

REPORT INFORMATION
  Report Type: Report from Study
  Country: DE (occurrence: DE)
  Receive Date: 20140418
  Receipt Date: 20140423
  Transmission Date: 20141212
  Serious: Yes (Hospitalization)
  Sender: FDA-Public Use
  Company Number: DE-ROCHE-1382350

PATIENT
  Age: 67 Year
  Sex: Male
  Weight: 83 kg

DRUGS (11)
  1. RITUXIMAB [Suspect]
     Indication: DIFFUSE LARGE B-CELL LYMPHOMA
     Dosage: THE MOST RECENT DOSE PRIOR TO SAE WAS 25/MAR/2014
     Route: 042
     Dates: start: 20140325
  2. CO-TRIMOXAZOLE [Concomitant]
     Indication: PROPHYLACTIC CHEMOTHERAPY
     Route: 048
     Dates: start: 20140326
  3. RAMIPRIL [Concomitant]
     Indication: HYPERTENSION
     Route: 048
     Dates: start: 2000
  4. ASS [Concomitant]
     Route: 048
     Dates: start: 2004
  5. PALONOSETRON [Concomitant]
     Indication: PROPHYLACTIC CHEMOTHERAPY
     Route: 042
     Dates: start: 20140326
  6. FOSAPREPITANT [Concomitant]
     Indication: PROPHYLACTIC CHEMOTHERAPY
     Route: 042
     Dates: start: 20140326
  7. UROMITEXAN [Concomitant]
     Indication: PROPHYLACTIC CHEMOTHERAPY
     Route: 048
     Dates: start: 20140326
  8. UROMITEXAN [Concomitant]
     Route: 042
     Dates: start: 20140326
  9. NEULASTA [Concomitant]
     Indication: PROPHYLACTIC CHEMOTHERAPY
     Dosage: 1 INJECTION
     Route: 058
     Dates: start: 20140327
  10. METOCLOPRAMIDE DIHYDROCHLORIDE [Concomitant]
     Indication: PROPHYLACTIC CHEMOTHERAPY
     Route: 048
     Dates: start: 20140326
  11. PREDNISOLON [Concomitant]
     Indication: PROPHYLACTIC CHEMOTHERAPY
     Route: 048
     Dates: start: 20140326

REACTIONS (1)
  - Constipation [Recovered/Resolved]
